FAERS Safety Report 10004431 (Version 2)
Quarter: 2014Q2

REPORT INFORMATION
  Report Type: Spontaneous
  Country: US (occurrence: US)
  Receive Date: 20140312
  Receipt Date: 20140425
  Transmission Date: 20141212
  Serious: No
  Sender: FDA-Public Use
  Company Number: US-PFIZER INC-2014070912

PATIENT
  Sex: Female

DRUGS (2)
  1. NICOTROL INHALER [Suspect]
     Indication: SMOKING CESSATION THERAPY
     Dosage: UNK, AS NEEDED
     Dates: start: 20140227
  2. CRESTOR [Concomitant]
     Indication: BLOOD CHOLESTEROL ABNORMAL
     Dosage: UNK

REACTIONS (10)
  - Abdominal distension [Unknown]
  - Swelling [Unknown]
  - Dizziness [Recovered/Resolved]
  - Middle insomnia [Unknown]
  - Hyperhidrosis [Recovered/Resolved]
  - Tremor [Unknown]
  - Fear [Unknown]
  - Feeling hot [Unknown]
  - Nausea [Recovered/Resolved]
  - Abdominal distension [Recovered/Resolved]
